FAERS Safety Report 12994625 (Version 1)
Quarter: 2016Q4

REPORT INFORMATION
  Report Type: Spontaneous
  Country: US (occurrence: US)
  Receive Date: 20161202
  Receipt Date: 20161202
  Transmission Date: 20170207
  Serious: Yes (Other)
  Sender: FDA-Public Use
  Company Number: US-WEST-WARD PHARMACEUTICALS CORP.-US-H14001-16-02567

PATIENT
  Age: 63 Year
  Sex: Female

DRUGS (1)
  1. AZATHIOPRINE. [Suspect]
     Active Substance: AZATHIOPRINE
     Indication: AUTOIMMUNE HEPATITIS
     Route: 065

REACTIONS (3)
  - Nodular regenerative hyperplasia [Recovering/Resolving]
  - Condition aggravated [Recovering/Resolving]
  - Portal venous system anomaly [Recovering/Resolving]
